FAERS Safety Report 6164323-0 (Version None)
Quarter: 2009Q2

REPORT INFORMATION
  Report Type: 
  Country: None (occurrence: None)
  Receive Date: 20090422
  Receipt Date: 20090417
  Transmission Date: 20091009
  Serious: Yes (Hospitalization)
  Sender: FDA-Public Use
  Company Number: GB-AMGEN-UK343426

PATIENT
  Sex: Male
  Weight: 80 kg

DRUGS (2)
  1. PANITUMUMAB [Suspect]
     Indication: COLORECTAL CANCER
     Route: 042
     Dates: start: 20090309
  2. IRINOTECAN HCL [Suspect]
     Route: 042
     Dates: start: 20090309

REACTIONS (1)
  - ATRIAL FIBRILLATION [None]
